FAERS Safety Report 5812993-6 (Version None)
Quarter: 2008Q3

REPORT INFORMATION
  Report Type: 
  Country: None (occurrence: None)
  Receive Date: 20080717
  Receipt Date: 20070926
  Transmission Date: 20090109
  Serious: No
  Sender: FDA-Public Use
  Company Number: A0684123A

PATIENT
  Age: 41 Year
  Sex: Female

DRUGS (2)
  1. NICORETTE [Suspect]
  2. WELLBUTRIN [Concomitant]

REACTIONS (4)
  - GINGIVAL BLISTER [None]
  - GINGIVAL ULCERATION [None]
  - MOUTH ULCERATION [None]
  - OROPHARYNGEAL BLISTERING [None]
